FAERS Safety Report 5408395-7 (Version None)
Quarter: 2007Q3

REPORT INFORMATION
  Report Type: 
  Country: None (occurrence: None)
  Receive Date: 20070806
  Receipt Date: 20070720
  Transmission Date: 20080115
  Serious: Yes (Life-Threatening, Hospitalization)
  Sender: FDA-Public Use
  Company Number: DSA_29633_2007

PATIENT
  Age: 24 Year
  Sex: Female

DRUGS (3)
  1. HERBESSER TANABE DILTIAZEM) 30 MG [Suspect]
     Dosage: 1800 MG 1X ORAL
     Route: 048
     Dates: start: 20060813
  2. RYTHMODAN (DISOPYRAMIDE) 50 MG [Suspect]
     Dosage: 3000 MG 1X ORAL
     Route: 048
     Dates: start: 20060813
  3. KALLIDINOGENASE (KALLIDINOGENASE) 10 MG [Suspect]
     Dosage: 200 MG 1X ORAL
     Route: 048
     Dates: start: 20060813

REACTIONS (9)
  - BLOOD POTASSIUM DECREASED [None]
  - BLOOD PRESSURE DECREASED [None]
  - DEPRESSED LEVEL OF CONSCIOUSNESS [None]
  - ELECTROCARDIOGRAM QRS COMPLEX PROLONGED [None]
  - ELECTROCARDIOGRAM QT PROLONGED [None]
  - HEART RATE DECREASED [None]
  - MULTIPLE DRUG OVERDOSE [None]
  - NODAL RHYTHM [None]
  - SUICIDE ATTEMPT [None]
